FAERS Safety Report 26201033 (Version 1)
Quarter: 2025Q4

REPORT INFORMATION
  Report Type: Spontaneous
  Country: JP (occurrence: JP)
  Receive Date: 20251226
  Receipt Date: 20251226
  Transmission Date: 20260118
  Serious: Yes (Hospitalization, Other)
  Sender: SANOFI AVENTIS
  Company Number: JP-SA-2025SA353808

PATIENT
  Age: 8 Decade
  Sex: Male

DRUGS (2)
  1. KEVZARA [Suspect]
     Active Substance: SARILUMAB
     Indication: Rheumatic disorder
     Dosage: 150 MG, QOW
     Route: 058
  2. CELECOXIB [Concomitant]
     Active Substance: CELECOXIB
     Indication: Rheumatic disorder
     Route: 065

REACTIONS (6)
  - Disseminated intravascular coagulation [Recovered/Resolved]
  - Septic shock [Recovered/Resolved]
  - Pyrexia [Recovered/Resolved]
  - Altered state of consciousness [Recovered/Resolved]
  - Rash erythematous [Recovered/Resolved]
  - Vibrio vulnificus infection [Recovered/Resolved]

NARRATIVE: CASE EVENT DATE: 20240701
